FAERS Safety Report 14546817 (Version 1)
Quarter: 2018Q1

REPORT INFORMATION
  Report Type: Spontaneous
  Country: US (occurrence: US)
  Receive Date: 20180219
  Receipt Date: 20180219
  Transmission Date: 20180509
  Serious: Yes (Other)
  Sender: FDA-Public Use
  Company Number: US-BAYER-2018-028183

PATIENT

DRUGS (3)
  1. PARACETAMOL [Suspect]
     Active Substance: ACETAMINOPHEN
     Dosage: UNK
  2. BETAMETHASONE. [Suspect]
     Active Substance: BETAMETHASONE
  3. CODEINE [Suspect]
     Active Substance: CODEINE

REACTIONS (4)
  - Premature baby [None]
  - Foetal exposure during pregnancy [None]
  - Foetal distress syndrome [None]
  - Bradycardia [None]
